FAERS Safety Report 6282841-1 (Version None)
Quarter: 2009Q3

REPORT INFORMATION
  Report Type: 
  Country: None (occurrence: None)
  Receive Date: 20090714
  Receipt Date: 20081015
  Transmission Date: 20100115
  Serious: No
  Sender: FDA-Public Use
  Company Number: WSDF_00757

PATIENT
  Sex: Female

DRUGS (1)
  1. WINRHO [Suspect]
     Indication: PROPHYLAXIS AGAINST RH ISOIMMUNISATION

REACTIONS (2)
  - DRUG EXPOSURE DURING PREGNANCY [None]
  - WRONG DRUG ADMINISTERED [None]
